FAERS Safety Report 23872210 (Version 1)
Quarter: 2024Q2

REPORT INFORMATION
  Report Type: Spontaneous
  Country: AU (occurrence: AU)
  Receive Date: 20240520
  Receipt Date: 20240520
  Transmission Date: 20240716
  Serious: Yes (Death, Other)
  Sender: FDA-Public Use
  Company Number: AU-SANDOZ-SDZ2024AU049817

PATIENT
  Age: 70 Year
  Sex: Female

DRUGS (21)
  1. DEXAMETHASONE [Suspect]
     Active Substance: DEXAMETHASONE
     Dosage: 40 MG  1 WEEK
     Route: 065
     Dates: start: 20160406, end: 20160413
  2. DEXAMETHASONE [Suspect]
     Active Substance: DEXAMETHASONE
     Indication: Plasma cell myeloma
     Dosage: 40 MG 1 WEEK
     Route: 065
     Dates: start: 20160308
  3. DARATUMUMAB [Suspect]
     Active Substance: DARATUMUMAB
     Indication: Plasma cell myeloma
     Dosage: 1088 MG  1 WEEK
     Route: 042
     Dates: start: 20160308
  4. DARATUMUMAB [Suspect]
     Active Substance: DARATUMUMAB
     Dosage: 1088 MG  1 WEEK
     Route: 042
     Dates: start: 20160406, end: 20160413
  5. LENALIDOMIDE [Suspect]
     Active Substance: LENALIDOMIDE
     Indication: Plasma cell myeloma
     Dosage: 40 MG, QD
     Route: 048
     Dates: start: 20160308, end: 20160413
  6. ASPIRIN [Concomitant]
     Active Substance: ASPIRIN
     Indication: Prophylaxis
     Dosage: 30 MG  INTERVAL: 1 DAY
     Route: 048
     Dates: start: 201512
  7. AMLODIPINE [Concomitant]
     Active Substance: AMLODIPINE BESYLATE
     Indication: Hypertension
     Dosage: 10 MG  INTERVAL: 1 DAY
     Route: 048
     Dates: start: 2012
  8. ASPIRIN [Concomitant]
     Active Substance: ASPIRIN
     Indication: Thrombosis prophylaxis
     Dosage: 100 MG ; INTERVAL: 1
     Route: 048
     Dates: start: 20160307
  9. BIMATOPROST [Concomitant]
     Active Substance: BIMATOPROST
     Indication: Glaucoma
     Dosage: 1 INTERVAL: 1 DAY
     Route: 047
     Dates: start: 2009
  10. CALCIUM CARBONATE [Concomitant]
     Active Substance: CALCIUM CARBONATE
     Indication: Mineral supplementation
     Dosage: 600 MG  INTERVAL: 1 DAY
     Route: 048
     Dates: start: 20160309
  11. CARBOXYMETHYLCELLULOSE SODIUM [Concomitant]
     Active Substance: CARBOXYMETHYLCELLULOSE SODIUM
     Indication: Dry eye
     Dosage: UNK 1 DAY
     Route: 047
     Dates: start: 20160325
  12. CHOLECALCIFEROL [Concomitant]
     Active Substance: CHOLECALCIFEROL
     Indication: Vitamin supplementation
     Dosage: 1000 IU  INTERVAL: 1 DAY
     Route: 065
     Dates: start: 2012
  13. COMBIGAN [Concomitant]
     Active Substance: BRIMONIDINE TARTRATE\TIMOLOL MALEATE
     Indication: Glaucoma
     Dosage: 1 1 DAY
     Route: 047
     Dates: start: 2009
  14. FUROSEMIDE [Concomitant]
     Active Substance: FUROSEMIDE
     Indication: Oedema
     Dosage: 20 MG  INTERVAL: 1 DAY
     Route: 048
     Dates: start: 20160405
  15. FUROSEMIDE [Concomitant]
     Active Substance: FUROSEMIDE
     Dosage: 40 MG INTERVAL: 1 DAY
     Route: 048
     Dates: start: 20160405
  16. IRON [Concomitant]
     Active Substance: IRON
     Indication: Mineral supplementation
     Dosage: 100 MG  INTERVAL: 1 DAY
     Route: 048
     Dates: start: 201001
  17. METOCLOPRAMIDE [Concomitant]
     Active Substance: METOCLOPRAMIDE
     Indication: Nausea
     Dosage: 10 MG INTERVAL: 1 DAY
     Route: 048
     Dates: start: 20160325
  18. INSULIN ASPART [Concomitant]
     Active Substance: INSULIN ASPART
     Indication: Type 2 diabetes mellitus
     Dosage: INTERVAL: 1 DAY
     Route: 058
     Dates: start: 2006
  19. OMEPRAZOLE [Concomitant]
     Active Substance: DONEPEZIL HYDROCHLORIDE\OMEPRAZOLE\OMEPRAZOLE MAGNESIUM
     Indication: Gastrointestinal disorder
     Dosage: 40 MG INTERVAL: 1 DAY
     Route: 048
     Dates: start: 20160115
  20. ONDANSETRON [Concomitant]
     Active Substance: ONDANSETRON
     Indication: Nausea
     Dosage: 8 MG  INTERVAL: 0 DAY
     Route: 048
     Dates: start: 20160322
  21. ACETAMINOPHEN [Concomitant]
     Active Substance: ACETAMINOPHEN
     Indication: Rheumatoid arthritis
     Dosage: 1 G INTERVAL: 1 DAY
     Route: 048
     Dates: start: 2006

REACTIONS (2)
  - Neutropenic sepsis [Fatal]
  - Febrile neutropenia [Not Recovered/Not Resolved]

NARRATIVE: CASE EVENT DATE: 20160421
